FAERS Safety Report 6631188-X (Version None)
Quarter: 2010Q1

REPORT INFORMATION
  Report Type: 
  Country: None (occurrence: None)
  Receive Date: 20100309
  Receipt Date: 20100224
  Transmission Date: 20100710
  Serious: Yes (Other)
  Sender: FDA-Public Use
  Company Number: 1000012320

PATIENT
  Age: 67 Year
  Sex: Female

DRUGS (11)
  1. ESCITALOPRAM OXALATE [Suspect]
     Dosage: 15 MG (15 MG, 1 IN 1 D), ORAL
     Route: 048
     Dates: start: 20080227
  2. PANTOPRAZOL ALTER [Suspect]
     Dosage: 80 MG (40 MG, 2 IN 1 D), ORAL
     Route: 048
     Dates: start: 20080402
  3. SEROQUEL [Suspect]
     Indication: DEPRESSION
     Dosage: (100 MG), ORAL
     Route: 048
     Dates: start: 20081202, end: 20091110
  4. TRIALMIN [Suspect]
     Dosage: 600 MG (600 MG, 1 IN 1 D), ORAL
     Route: 048
     Dates: start: 20090622
  5. IRBESARTAN AND HYDROCHLOROTHIAZIDE [Suspect]
     Dosage: 150/12.5 MG, ORAL
     Route: 048
     Dates: start: 20070418
  6. ALENDRONATE SODIUM [Concomitant]
  7. ROPINIROLE HYDROCHLORIDE [Concomitant]
  8. BONESIL D FLAS [Concomitant]
  9. SIMVASTATIN [Concomitant]
  10. TORASEMIDE [Concomitant]
  11. ZOLPIDEM [Concomitant]

REACTIONS (2)
  - BLINDNESS [None]
  - GLAUCOMA [None]
